FAERS Safety Report 7399113-4 (Version None)
Quarter: 2011Q2

REPORT INFORMATION
  Report Type: 
  Country: None (occurrence: None)
  Receive Date: 20110407
  Receipt Date: 20110406
  Transmission Date: 20111010
  Serious: Yes (Death)
  Sender: FDA-Public Use
  Company Number: IN-EISAI INC-E2090-01462-CLI-IN

PATIENT
  Sex: Male
  Weight: 29 kg

DRUGS (11)
  1. ZONISAMIDE [Suspect]
     Indication: EPILEPSY
     Route: 048
     Dates: start: 20100730, end: 20100805
  2. ZONISAMIDE [Suspect]
     Route: 048
     Dates: start: 20100813, end: 20100819
  3. ZONISAMIDE [Suspect]
     Route: 048
     Dates: start: 20100920, end: 20101221
  4. ZONISAMIDE [Suspect]
     Route: 048
     Dates: start: 20100903, end: 20100912
  5. ANTI-DIARRHEAL [Concomitant]
     Route: 048
     Dates: start: 20101218, end: 20101220
  6. ZONISAMIDE [Suspect]
     Route: 048
     Dates: start: 20100820, end: 20100826
  7. ZONISAMIDE [Suspect]
     Route: 048
     Dates: start: 20100827, end: 20100902
  8. CARBAMAZEPINE [Concomitant]
     Dosage: 200MG ONCE A DAY AND 300MG ONCE A DAY
     Route: 048
     Dates: start: 20100426, end: 20101223
  9. PHENYTOIN [Concomitant]
     Route: 048
     Dates: start: 20100426, end: 20101223
  10. ZONISAMIDE [Suspect]
     Route: 048
     Dates: start: 20100806, end: 20100812
  11. ZONISAMIDE [Suspect]
     Route: 048
     Dates: start: 20100913, end: 20100919

REACTIONS (1)
  - STATUS EPILEPTICUS [None]
